FAERS Safety Report 21916330 (Version 3)
Quarter: 2023Q1

REPORT INFORMATION
  Report Type: Spontaneous
  Country: EE (occurrence: EE)
  Receive Date: 20230126
  Receipt Date: 20230217
  Transmission Date: 20230418
  Serious: No
  Sender: FDA-Public Use
  Company Number: EE-BAYER-2023P004808

PATIENT

DRUGS (1)
  1. PRIMOVIST [Suspect]
     Active Substance: GADOXETATE DISODIUM

REACTIONS (4)
  - Wound haemorrhage [None]
  - Limb injury [None]
  - Product package associated injury [None]
  - Syringe issue [None]

NARRATIVE: CASE EVENT DATE: 20220930
